FAERS Safety Report 21962741 (Version 3)
Quarter: 2023Q1

REPORT INFORMATION
  Report Type: Spontaneous
  Country: US (occurrence: US)
  Receive Date: 20230207
  Receipt Date: 20230221
  Transmission Date: 20230418
  Serious: No
  Sender: FDA-Public Use
  Company Number: US-TAKEDA-2023TUS012578

PATIENT
  Sex: Female
  Weight: 51 kg

DRUGS (1)
  1. MOTEGRITY [Suspect]
     Active Substance: PRUCALOPRIDE SUCCINATE
     Indication: Neurogenic bowel
     Dosage: 2 MILLIGRAM, QD
     Route: 048
     Dates: start: 202206

REACTIONS (4)
  - Insurance issue [Unknown]
  - Off label use [Unknown]
  - Drug effective for unapproved indication [Unknown]
  - Inability to afford medication [Unknown]
